FAERS Safety Report 5720645-6 (Version None)
Quarter: 2008Q2

REPORT INFORMATION
  Report Type: 
  Country: None (occurrence: None)
  Receive Date: 20080425
  Receipt Date: 20080425
  Transmission Date: 20081010
  Serious: Yes (Hospitalization, Other)
  Sender: FDA-Public Use
  Company Number: None

PATIENT
  Age: 33 Year
  Sex: Female
  Weight: 76.2043 kg

DRUGS (1)
  1. AVELOX [Suspect]
     Indication: CHRONIC SINUSITIS
     Dates: start: 20080415, end: 20080421

REACTIONS (9)
  - BALANCE DISORDER [None]
  - CONFUSIONAL STATE [None]
  - DISORIENTATION [None]
  - EAR DISCOMFORT [None]
  - HEADACHE [None]
  - HYPERSENSITIVITY [None]
  - JOINT STIFFNESS [None]
  - MUSCULOSKELETAL STIFFNESS [None]
  - TREMOR [None]
